FAERS Safety Report 5775295-2 (Version None)
Quarter: 2008Q2

REPORT INFORMATION
  Report Type: 
  Country: None (occurrence: None)
  Receive Date: 20080617
  Receipt Date: 20080606
  Transmission Date: 20081010
  Serious: Yes (Hospitalization)
  Sender: FDA-Public Use
  Company Number: ES-ROCHE-568955

PATIENT
  Age: 56 Year
  Sex: Female

DRUGS (8)
  1. XENICAL [Suspect]
     Indication: DRUG USE FOR UNKNOWN INDICATION
     Route: 065
     Dates: start: 20071001
  2. IDALPREM [Suspect]
     Indication: DRUG USE FOR UNKNOWN INDICATION
     Route: 065
     Dates: start: 20071001, end: 20080401
  3. SEROQUEL [Suspect]
     Indication: DRUG USE FOR UNKNOWN INDICATION
     Dosage: COATED TABLETS
     Route: 065
     Dates: start: 20071001, end: 20080401
  4. AMERIDE [Suspect]
     Indication: DRUG USE FOR UNKNOWN INDICATION
     Dosage: STRENGTH: 5/50 MG/TABLET
     Route: 065
     Dates: start: 20070101
  5. AMERIDE [Suspect]
     Dosage: STRENGTH: 5/50 MG/TABLET
     Route: 065
     Dates: start: 20070101
  6. ATORVASTATIN CALCIUM [Suspect]
     Indication: DRUG USE FOR UNKNOWN INDICATION
     Dosage: COATED TABLETS
     Route: 065
     Dates: start: 20070101
  7. DEPAMIDE [Suspect]
     Indication: DRUG USE FOR UNKNOWN INDICATION
     Dosage: STRENGTH: 30; FORM: PILL
     Route: 065
     Dates: start: 20070101
  8. OXCARBAZEPINE [Suspect]
     Indication: DEPRESSION
     Dosage: DRUG NAME: EPILEXTER, COATED TABLETS
     Route: 048
     Dates: start: 20070401, end: 20080301

REACTIONS (2)
  - DEPRESSED LEVEL OF CONSCIOUSNESS [None]
  - HYPONATRAEMIA [None]
